FAERS Safety Report 22043124 (Version 3)
Quarter: 2023Q1

REPORT INFORMATION
  Report Type: Report from Study
  Country: CZ (occurrence: CZ)
  Receive Date: 20230228
  Receipt Date: 20230323
  Transmission Date: 20230417
  Serious: Yes (Hospitalization)
  Sender: FDA-Public Use
  Company Number: CZ-CELLTRION INC.-2023CZ004507

PATIENT

DRUGS (6)
  1. RITUXIMAB [Suspect]
     Active Substance: RITUXIMAB
     Indication: Mantle cell lymphoma
     Dosage: EVERY 6 MONTHS, LAST TREATMENT CYCLE C6D1 (21.11.2022)
     Dates: start: 20220530, end: 20221122
  2. RITUXIMAB [Suspect]
     Active Substance: RITUXIMAB
     Indication: Mantle cell lymphoma
     Dosage: 671 MILLIGRAM
     Route: 042
     Dates: start: 20221121
  3. BENDAMUSTINE [Suspect]
     Active Substance: BENDAMUSTINE
     Indication: Mantle cell lymphoma
     Dosage: EVERY 6 MONTHS, LAST TREATMENT CYCLE C6D1 (21.11.2022)
     Dates: start: 20220530, end: 20221122
  4. BENDAMUSTINE [Suspect]
     Active Substance: BENDAMUSTINE
     Dosage: 90 MILLIGRAM
     Route: 042
     Dates: start: 20221121
  5. POLATUZUMAB VEDOTIN [Suspect]
     Active Substance: POLATUZUMAB VEDOTIN
     Indication: Mantle cell lymphoma
     Dosage: EVERY 6 MONTHS, LAST TREATMENT CYCLE C6D1 (21/11/2022)
     Dates: start: 20220530, end: 20221122
  6. POLATUZUMAB VEDOTIN [Suspect]
     Active Substance: POLATUZUMAB VEDOTIN
     Dosage: 124 MILLIGRAM
     Route: 042
     Dates: start: 20221121

REACTIONS (3)
  - Vertigo [Recovered/Resolved with Sequelae]
  - Nausea [Not Recovered/Not Resolved]
  - Off label use [Unknown]

NARRATIVE: CASE EVENT DATE: 20230131
